FAERS Safety Report 9013880 (Version 1)
Quarter: 2013Q1

REPORT INFORMATION
  Report Type: Spontaneous
  Country: US (occurrence: None)
  Receive Date: 20130108
  Receipt Date: 20130108
  Transmission Date: 20140127
  Serious: Yes (Other)
  Sender: FDA-Public Use
  Company Number: None

PATIENT
  Age: 51 Year
  Sex: Female
  Weight: 63.5 kg

DRUGS (1)
  1. PENICILLLIN VK, 500 MG, SAFEWAY PHARMACY, PORT TOWNSEND [Suspect]
     Route: 048
     Dates: start: 20120909, end: 20120911

REACTIONS (1)
  - Blood urine present [None]
